FAERS Safety Report 8846292 (Version 2)
Quarter: 2012Q4

REPORT INFORMATION
  Report Type: 
  Country: US (occurrence: US)
  Receive Date: 20121018
  Receipt Date: 20121031
  Transmission Date: 20130627
  Serious: Yes (Other)
  Sender: FDA-Public Use
  Company Number: US-009507513-1210USA006766

PATIENT
  Age: 82 None
  Sex: Female

DRUGS (1)
  1. INTRONA [Suspect]
     Indication: BLADDER CANCER
     Dosage: UNK
     Dates: start: 20121010

REACTIONS (6)
  - Paralysis [Unknown]
  - Vulvovaginal swelling [Not Recovered/Not Resolved]
  - Dizziness [Not Recovered/Not Resolved]
  - Pyrexia [Not Recovered/Not Resolved]
  - Heart rate increased [Not Recovered/Not Resolved]
  - Malaise [Unknown]
